FAERS Safety Report 5389526-4 (Version None)
Quarter: 2007Q3

REPORT INFORMATION
  Report Type: 
  Country: None (occurrence: None)
  Receive Date: 20070717
  Receipt Date: 20070706
  Transmission Date: 20080115
  Serious: Yes (Other)
  Sender: FDA-Public Use
  Company Number: US-PFIZER INC-2005105389

PATIENT
  Sex: Male
  Weight: 108.9 kg

DRUGS (2)
  1. VIAGRA [Suspect]
     Indication: ERECTILE DYSFUNCTION
     Route: 048
  2. SYNTHROID [Concomitant]
     Route: 048

REACTIONS (5)
  - DRUG EFFECT DECREASED [None]
  - DYSGEUSIA [None]
  - EYE LASER SURGERY [None]
  - HYPERMETROPIA [None]
  - INTENTIONAL DRUG MISUSE [None]
